FAERS Safety Report 7466347-X (Version None)
Quarter: 2011Q2

REPORT INFORMATION
  Report Type: 
  Country: None (occurrence: None)
  Receive Date: 20110509
  Receipt Date: 20100804
  Transmission Date: 20111010
  Serious: No
  Sender: FDA-Public Use
  Company Number: US-ALEXION-A201000928

PATIENT
  Sex: Female
  Weight: 81.633 kg

DRUGS (2)
  1. SOLIRIS [Suspect]
     Indication: PAROXYSMAL NOCTURNAL HAEMOGLOBINURIA
     Dosage: 900 MG, Q2W
     Route: 042
     Dates: start: 20100723
  2. SOLIRIS [Suspect]
     Dosage: 900 MG, Q12 DAYS
     Route: 042
     Dates: start: 20100804

REACTIONS (4)
  - CHILLS [None]
  - PAIN [None]
  - PYREXIA [None]
  - BLOOD LACTATE DEHYDROGENASE INCREASED [None]
